FAERS Safety Report 24738604 (Version 1)
Quarter: 2024Q4

REPORT INFORMATION
  Report Type: Spontaneous
  Country: US (occurrence: US)
  Receive Date: 20241216
  Receipt Date: 20241216
  Transmission Date: 20250114
  Serious: No
  Sender: ALVOGEN
  Company Number: US-ALVOGEN-2023092755

PATIENT
  Sex: Male

DRUGS (2)
  1. FENTANYL [Suspect]
     Active Substance: FENTANYL
     Indication: Pain
     Dosage: 12MCG/HR, DIDN^T HAVE DETAILS OF PATCH, DID NOT RELIEVE HIS PAIN AS HE ALREADY THREW THAT BOX AWAY.
     Route: 062
  2. FENTANYL [Suspect]
     Active Substance: FENTANYL
     Indication: Pain
     Dosage: 25MCG/HR, EXPIRATION DATE: UU-AUG-2026. ONLY ONE PATCH WAS NOT STICKING.
     Route: 062

REACTIONS (4)
  - Device malfunction [Unknown]
  - Device adhesion issue [Unknown]
  - Wrong technique in device usage process [Unknown]
  - Drug delivery system removal [Unknown]
